FAERS Safety Report 5446657-8 (Version None)
Quarter: 2007Q3

REPORT INFORMATION
  Report Type: 
  Country: None (occurrence: None)
  Receive Date: 20070907
  Receipt Date: 20070824
  Transmission Date: 20080115
  Serious: Yes (Other)
  Sender: FDA-Public Use
  Company Number: FR-GENENTECH-247146

PATIENT
  Age: 47 Year
  Sex: Female

DRUGS (4)
  1. HERCEPTIN [Suspect]
     Indication: DRUG USE FOR UNKNOWN INDICATION
     Dates: start: 20060615
  2. MICARDIS [Concomitant]
     Indication: DRUG USE FOR UNKNOWN INDICATION
  3. ZOCOR [Concomitant]
     Indication: DRUG USE FOR UNKNOWN INDICATION
  4. SECTRAL [Concomitant]
     Indication: DRUG USE FOR UNKNOWN INDICATION

REACTIONS (2)
  - HEPATOMEGALY [None]
  - LIVER FUNCTION TEST ABNORMAL [None]
